FAERS Safety Report 4737566-8 (Version None)
Quarter: 2005Q3

REPORT INFORMATION
  Report Type: 
  Country: None (occurrence: None)
  Receive Date: 20050809
  Receipt Date: 20050509
  Transmission Date: 20060218
  Serious: No
  Sender: FDA-Public Use
  Company Number: US-GLAXOSMITHKLINE-A0557687A

PATIENT
  Age: 67 Year

DRUGS (2)
  1. COMMIT [Suspect]
     Route: 002
  2. NICORETTE OTC GUM, ORIGINAL [Suspect]
     Dates: start: 20000101, end: 20000101

REACTIONS (8)
  - ABDOMINAL PAIN [None]
  - DRUG ABUSER [None]
  - DRUG WITHDRAWAL SYNDROME [None]
  - FAECES DISCOLOURED [None]
  - GINGIVAL PAIN [None]
  - GINGIVITIS [None]
  - HAEMATOCHEZIA [None]
  - NICOTINE DEPENDENCE [None]
